FAERS Safety Report 8301638-1 (Version None)
Quarter: 2012Q2

REPORT INFORMATION
  Report Type: 
  Country: None (occurrence: None)
  Receive Date: 20120420
  Receipt Date: 20120411
  Transmission Date: 20120825
  Serious: Yes (Other)
  Sender: FDA-Public Use
  Company Number: US-ROCHE-1058797

PATIENT
  Sex: Female
  Weight: 89.892 kg

DRUGS (1)
  1. XELODA [Suspect]
     Indication: BREAST CANCER METASTATIC
     Route: 048
     Dates: start: 20120220

REACTIONS (3)
  - BREAST PAIN [None]
  - CHEST PAIN [None]
  - PAIN IN EXTREMITY [None]
